FAERS Safety Report 5402105-5 (Version None)
Quarter: 2007Q3

REPORT INFORMATION
  Report Type: 
  Country: None (occurrence: None)
  Receive Date: 20070801
  Receipt Date: 20070720
  Transmission Date: 20080115
  Serious: Yes (Other)
  Sender: FDA-Public Use
  Company Number: CA-JNJFOC-20070602495

PATIENT
  Sex: Male

DRUGS (13)
  1. REMICADE [Suspect]
     Dosage: 8TH INFUSION
     Route: 042
  2. REMICADE [Suspect]
     Route: 042
  3. REMICADE [Suspect]
     Route: 042
  4. REMICADE [Suspect]
     Indication: DRUG USE FOR UNKNOWN INDICATION
     Dosage: 6 INFUSIONS ON UNKNOWN DATES
     Route: 042
  5. FERROUS SULFATE [Concomitant]
  6. FOLIC ACID [Concomitant]
     Dosage: DAILY FOR 3 DAYS FOLLOWING METHOTREXATE
  7. NAPROXEN [Concomitant]
  8. PANTOPRAZOLE SODIUM [Concomitant]
  9. METHOTREXATE SODIUM [Concomitant]
     Route: 050
  10. PANTASA [Concomitant]
  11. CYCLOBENZAPRINE HCL [Concomitant]
  12. SODIUM METHOTREXATE [Concomitant]
     Dosage: 2.5 MG, 4 TABLETS EVERY 7 DAYS FOR 2 WEEKS, THEN 6 TABLETS AFTERWARDS
  13. LORATADINE [Concomitant]
     Indication: MULTIPLE ALLERGIES

REACTIONS (1)
  - LIP SWELLING [None]
